FAERS Safety Report 8790803 (Version 1)
Quarter: 2012Q4

REPORT INFORMATION
  Report Type: Spontaneous
  Country: US (occurrence: None)
  Receive Date: 20120906
  Receipt Date: 20120906
  Transmission Date: 20130627
  Serious: Yes (Hospitalization, Other)
  Sender: FDA-Public Use
  Company Number: 100803-003647

PATIENT
  Age: 15 Year
  Sex: Female

DRUGS (2)
  1. PROACTIV RENEWING CLEANSER [Suspect]
     Indication: ACNE
     Route: 061
     Dates: start: 20100729, end: 20100731
  2. PROACTIV REPAIRING TREATMENT [Suspect]
     Indication: ACNE
     Route: 061
     Dates: start: 20100729, end: 20100731

REACTIONS (2)
  - Asthma [None]
  - Dyspnoea [None]
